FAERS Safety Report 13557235 (Version 1)
Quarter: 2017Q2

REPORT INFORMATION
  Report Type: Report from Study
  Country: US (occurrence: US)
  Receive Date: 20170517
  Receipt Date: 20170517
  Transmission Date: 20170830
  Serious: No
  Sender: FDA-Public Use
  Company Number: US-ACADIA PHARMACEUTICALS INC.-ACA-2017-002846

PATIENT
  Age: 59 Year
  Sex: Male

DRUGS (1)
  1. NUPLAZID [Suspect]
     Active Substance: PIMAVANSERIN TARTRATE
     Indication: PARKINSON^S DISEASE
     Dosage: 34 MG, AT BEDTIME
     Route: 048
     Dates: start: 20160809

REACTIONS (4)
  - Heart rate increased [Unknown]
  - Middle insomnia [Unknown]
  - Extrasystoles [Unknown]
  - Tremor [Unknown]

NARRATIVE: CASE EVENT DATE: 20170215
